FAERS Safety Report 12072093 (Version 1)
Quarter: 2016Q1

REPORT INFORMATION
  Report Type: Spontaneous
  Country: US (occurrence: None)
  Receive Date: 20160211
  Receipt Date: 20160211
  Transmission Date: 20160526
  Serious: Yes (Other)
  Sender: FDA-Public Use
  Company Number: None

PATIENT
  Age: 17 Year
  Sex: Female
  Weight: 54.43 kg

DRUGS (10)
  1. QUETIAPINE [Concomitant]
     Active Substance: QUETIAPINE
  2. NAPROXEN. [Concomitant]
     Active Substance: NAPROXEN
  3. STRATTERA [Suspect]
     Active Substance: ATOMOXETINE HYDROCHLORIDE
     Indication: ATTENTION DEFICIT/HYPERACTIVITY DISORDER
     Route: 048
     Dates: start: 20160208, end: 20160210
  4. GARCINIA CAMBOGIA [Concomitant]
     Active Substance: HYDROXYCITRIC ACID
  5. MULTI-VITAMINS (CALCIUM PANTOTHENATE, FOLIC ACID, VITAMINS NOS) [Concomitant]
     Active Substance: VITAMINS
  6. VITAMIN B12 [Concomitant]
     Active Substance: CYANOCOBALAMIN
  7. BUSPIRONE [Concomitant]
     Active Substance: BUSPIRONE HYDROCHLORIDE
  8. ACETAMINOPHEN. [Concomitant]
     Active Substance: ACETAMINOPHEN
  9. ATOMOXETINE [Concomitant]
     Active Substance: ATOMOXETINE
  10. LAMOTRIGINE. [Concomitant]
     Active Substance: LAMOTRIGINE

REACTIONS (5)
  - Anxiety [None]
  - Crying [None]
  - Screaming [None]
  - Aggression [None]
  - Mood altered [None]

NARRATIVE: CASE EVENT DATE: 20160209
